FAERS Safety Report 9145875 (Version 3)
Quarter: 2013Q4

REPORT INFORMATION
  Report Type: Spontaneous
  Country: US (occurrence: None)
  Receive Date: 20130215
  Receipt Date: 20131030
  Transmission Date: 20140711
  Serious: Yes (Death)
  Sender: FDA-Public Use
  Company Number: 1302-204

PATIENT
  Sex: Female

DRUGS (1)
  1. EYLEA [Suspect]
     Dates: start: 20120126

REACTIONS (1)
  - Death [None]
